FAERS Safety Report 7806204-X (Version None)
Quarter: 2011Q4

REPORT INFORMATION
  Report Type: 
  Country: None (occurrence: None)
  Receive Date: 20111011
  Receipt Date: 20110728
  Transmission Date: 20120403
  Serious: Yes (Other)
  Sender: FDA-Public Use
  Company Number: BR-PFIZER INC-2011240190

PATIENT
  Age: 55 Year
  Sex: Male

DRUGS (5)
  1. CLINFAR [Concomitant]
     Dosage: UNK
     Dates: start: 20090101
  2. ATLANSIL [Suspect]
     Indication: ARRHYTHMIA
     Dosage: 200 MG, 1X/DAY
     Route: 048
     Dates: start: 20110530, end: 20110728
  3. ASPIRIN [Concomitant]
     Dosage: UNK
     Dates: start: 20100101
  4. DIAMICRON MR [Concomitant]
     Dosage: UNK
  5. METFORMIN HYDROCHLORIDE/VILDAGLIPTIN [Concomitant]
     Dosage: UNK
     Dates: start: 20080101

REACTIONS (3)
  - PRODUCT QUALITY ISSUE [None]
  - HEART RATE INCREASED [None]
  - ANGINA PECTORIS [None]
